FAERS Safety Report 5788017-6 (Version None)
Quarter: 2008Q2

REPORT INFORMATION
  Report Type: 
  Country: None (occurrence: None)
  Receive Date: 20080625
  Receipt Date: 20080613
  Transmission Date: 20081010
  Serious: No
  Sender: FDA-Public Use
  Company Number: FI-ELI_LILLY_AND_COMPANY-FI200806002979

PATIENT
  Age: 52 Year
  Sex: Male

DRUGS (6)
  1. CYMBALTA [Suspect]
     Indication: DEPRESSION
     Dosage: 60 MG, UNK
     Dates: start: 20070901
  2. CYMBALTA [Suspect]
     Dosage: 90 MG, DAILY (1/D)
     Route: 065
     Dates: start: 20080428
  3. METADON [Concomitant]
     Indication: DRUG THERAPY
  4. OPAMOX [Concomitant]
     Dosage: 30 MG, DAILY (1/D)
  5. DEPRAKINE /00228501/ [Concomitant]
     Indication: BIPOLAR DISORDER
     Dosage: 1000 MG, DAILY (1/D)
  6. TRUXAL [Concomitant]
     Dosage: 15 MG, DAILY (1/D)

REACTIONS (4)
  - ALANINE AMINOTRANSFERASE INCREASED [None]
  - ANAEMIA [None]
  - PLATELET COUNT INCREASED [None]
  - THYROID FUNCTION TEST ABNORMAL [None]
